FAERS Safety Report 8954752 (Version 1)
Quarter: 2012Q4

REPORT INFORMATION
  Report Type: 
  Country: US (occurrence: US)
  Receive Date: 20121207
  Receipt Date: 20121207
  Transmission Date: 20130627
  Serious: Yes (Death, Hospitalization)
  Sender: FDA-Public Use
  Company Number: US-GLAXOSMITHKLINE-A1004434A

PATIENT
  Age: 73 Year
  Sex: Male

DRUGS (2)
  1. MELPHALAN [Suspect]
     Indication: MULTIPLE MYELOMA
     Dosage: 15MG Per day
     Route: 048
     Dates: start: 20120724, end: 20120727
  2. PREDNISONE [Suspect]
     Indication: MULTIPLE MYELOMA
     Dosage: 120MG Per day
     Route: 048
     Dates: start: 20120724, end: 20120727

REACTIONS (8)
  - Death [Fatal]
  - Respiratory failure [Unknown]
  - Pneumonia [Unknown]
  - Cardiac arrest [Unknown]
  - Pulseless electrical activity [Unknown]
  - Respiratory moniliasis [Unknown]
  - Cough [Unknown]
  - Asthenia [Unknown]
